FAERS Safety Report 6267723-3 (Version None)
Quarter: 2009Q3

REPORT INFORMATION
  Report Type: 
  Country: None (occurrence: None)
  Receive Date: 20090714
  Receipt Date: 20090706
  Transmission Date: 20100115
  Serious: Yes (Other)
  Sender: FDA-Public Use
  Company Number: PHEH2009US05339

PATIENT
  Sex: Female

DRUGS (15)
  1. EXJADE [Suspect]
     Indication: HAEMOCHROMATOSIS
     Dosage: 1000 MG, QD
     Route: 048
     Dates: start: 20090401, end: 20090512
  2. EXJADE [Suspect]
     Route: 048
  3. LEXAPRO [Concomitant]
  4. CLARITIN-D [Concomitant]
  5. ATIVAN [Concomitant]
     Dosage: 2 UNK, QHS
  6. GLUCOPHAGE [Concomitant]
     Dosage: 500 MG, QD
  7. MULTI-VITAMINS [Concomitant]
  8. PRILOSEC [Concomitant]
     Dosage: 20 MG, UNK
  9. OXYCODONE [Concomitant]
     Dosage: UNK
  10. FIBERCON (POLYCARBOPHIL) [Concomitant]
  11. MIRAPEX [Concomitant]
     Dosage: 0.125 MG, UNK
  12. TRAZODONE [Concomitant]
     Dosage: 150 MG, UNK
  13. EVISTA [Concomitant]
  14. ZETIA [Concomitant]
  15. FLONASE [Concomitant]

REACTIONS (4)
  - DYSKINESIA [None]
  - FEELING ABNORMAL [None]
  - PERIPHERAL COLDNESS [None]
  - TIC [None]
